FAERS Safety Report 15320273 (Version 2)
Quarter: 2018Q4

REPORT INFORMATION
  Report Type: Report from Study
  Country: None (occurrence: US)
  Receive Date: 20180827
  Receipt Date: 20181018
  Transmission Date: 20190204
  Serious: Yes (Other)
  Sender: FDA-Public Use
  Company Number: US-ABBVIE-18K-163-2459194-00

PATIENT
  Sex: Male

DRUGS (1)
  1. HUMIRA [Suspect]
     Active Substance: ADALIMUMAB
     Indication: PSORIASIS
     Route: 058

REACTIONS (5)
  - Lyme disease [Unknown]
  - Peripheral venous disease [Unknown]
  - Skin discolouration [Recovering/Resolving]
  - Psoriasis [Recovering/Resolving]
  - Intentional product misuse [Not Recovered/Not Resolved]
